FAERS Safety Report 12265068 (Version 2)
Quarter: 2016Q2

REPORT INFORMATION
  Report Type: Spontaneous
  Country: CZ (occurrence: CZ)
  Receive Date: 20160413
  Receipt Date: 20160428
  Transmission Date: 20160815
  Serious: Yes (Death)
  Sender: FDA-Public Use
  Company Number: CZ-ELI_LILLY_AND_COMPANY-CZ201604003342

PATIENT
  Age: 66 Year
  Sex: Female

DRUGS (18)
  1. ANOPYRIN [Concomitant]
     Active Substance: ASPIRIN
  2. ECOBEC [Concomitant]
     Active Substance: BECLOMETHASONE DIPROPIONATE
  3. CALCICHEW [Concomitant]
     Active Substance: CALCIUM CARBONATE
     Indication: OSTEOPOROSIS
  4. MONO MACK [Concomitant]
     Active Substance: ISOSORBIDE MONONITRATE
  5. HELICID                            /00661202/ [Concomitant]
  6. CLOPIDOGREL [Concomitant]
     Active Substance: CLOPIDOGREL BISULFATE
  7. PLAQUENIL                          /00072602/ [Concomitant]
     Active Substance: HYDROXYCHLOROQUINE DIPHOSPHATE
     Indication: RHEUMATOID ARTHRITIS
  8. NEBILET [Concomitant]
     Active Substance: NEBIVOLOL
  9. FORSTEO [Suspect]
     Active Substance: TERIPARATIDE
     Indication: OSTEOPOROSIS
     Dosage: 20 UG, QD
     Route: 058
     Dates: start: 20150115
  10. PREDNISONE. [Concomitant]
     Active Substance: PREDNISONE
     Indication: RHEUMATOID ARTHRITIS
  11. VIGANTOL                           /01871301/ [Concomitant]
     Indication: OSTEOPOROSIS
  12. TRANSTEC [Concomitant]
     Active Substance: BUPRENORPHINE
  13. ESSENTIALE                         /02184801/ [Concomitant]
  14. ATROVENT [Concomitant]
     Active Substance: IPRATROPIUM BROMIDE
  15. SALAZOPYRIN [Concomitant]
     Active Substance: SULFASALAZINE
     Indication: RHEUMATOID ARTHRITIS
  16. PRESTARIUM NEO [Concomitant]
     Active Substance: PERINDOPRIL ARGININE
  17. HYLAK FORTE [Concomitant]
  18. NITROMINT [Concomitant]

REACTIONS (2)
  - Osteoporosis [Unknown]
  - Sudden death [Fatal]

NARRATIVE: CASE EVENT DATE: 201512
